FAERS Safety Report 9866007 (Version 1)
Quarter: 2014Q1

REPORT INFORMATION
  Report Type: Spontaneous
  Country: US (occurrence: US)
  Receive Date: 20140203
  Receipt Date: 20140203
  Transmission Date: 20141002
  Serious: No
  Sender: FDA-Public Use
  Company Number: US-ALLERGAN-1313954US

PATIENT
  Age: 50 Year
  Sex: Female

DRUGS (2)
  1. RESTASIS [Suspect]
     Indication: DRY EYE
     Dosage: 2 GTT, UNK
     Route: 047
     Dates: start: 20130905, end: 20130905
  2. OTC LUBRICATING EYE DROP [Concomitant]
     Indication: DRY EYE
     Dosage: 2 GTT, QHS
     Route: 047

REACTIONS (12)
  - Paranasal sinus hypersecretion [Unknown]
  - Rhinorrhoea [Unknown]
  - Throat irritation [Unknown]
  - Conjunctivitis allergic [Recovering/Resolving]
  - Corneal abrasion [Recovering/Resolving]
  - Scleral hyperaemia [Recovering/Resolving]
  - Eye pain [Recovering/Resolving]
  - Eye irritation [Recovering/Resolving]
  - Eye pruritus [Recovering/Resolving]
  - Eye pain [Recovering/Resolving]
  - Lacrimation increased [Recovering/Resolving]
  - Dry eye [Not Recovered/Not Resolved]
